FAERS Safety Report 17006330 (Version 2)
Quarter: 2019Q4

REPORT INFORMATION
  Report Type: Spontaneous
  Country: US (occurrence: US)
  Receive Date: 20191107
  Receipt Date: 20191121
  Transmission Date: 20200122
  Serious: Yes (Hospitalization)
  Sender: FDA-Public Use
  Company Number: US-TEVA-2019-US-1132101

PATIENT
  Age: 38 Year
  Sex: Female

DRUGS (10)
  1. RITUXIMAB. [Suspect]
     Active Substance: RITUXIMAB
     Indication: HAEMOPHAGOCYTIC LYMPHOHISTIOCYTOSIS
     Dosage: ON HOSPITAL DAY 11 AND 21
     Route: 065
  2. DEXAMETHASONE. [Suspect]
     Active Substance: DEXAMETHASONE
     Dosage: HOSPITAL DAY 7 TO 10 AND ON DAY 24
     Route: 065
  3. DEXAMETHASONE. [Suspect]
     Active Substance: DEXAMETHASONE
     Indication: HAEMOPHAGOCYTIC LYMPHOHISTIOCYTOSIS
     Dosage: HOSPITAL DAY 2 TO 5 AND HOSPITAL DAY 11 TO 13
     Route: 065
  4. DEXAMETHASONE. [Suspect]
     Active Substance: DEXAMETHASONE
     Dosage: HOSPITAL DAY 14 TO 23
     Route: 065
  5. ETOPOSIDE. [Suspect]
     Active Substance: ETOPOSIDE
     Indication: HAEMOPHAGOCYTIC LYMPHOHISTIOCYTOSIS
     Dosage: INITIAL DOSE NOT STATED; FROM HOSPITAL DAY 7 ONWARDS
     Route: 065
  6. ETOPOSIDE. [Suspect]
     Active Substance: ETOPOSIDE
     Dosage: FROM HOSPITAL DAY 15 ONWARDS
     Route: 065
  7. IMMUNOGLOBULIN IV [Suspect]
     Active Substance: HUMAN IMMUNOGLOBULIN G
     Indication: HAEMOPHAGOCYTIC LYMPHOHISTIOCYTOSIS
     Dosage: 1 G/KG; ON HOSPITAL DAY 2, 3 AND 18
     Route: 042
  8. RUXOLITINIB [Suspect]
     Active Substance: RUXOLITINIB
     Indication: HAEMOPHAGOCYTIC LYMPHOHISTIOCYTOSIS
     Dosage: 40 MILLIGRAM DAILY; ADMINISTERED FOR 4 DAYS STARTING FROM HOSPITAL DAY 26; HELD ON DAY 29 AND THEREA
     Route: 065
  9. DEXAMETHASONE. [Suspect]
     Active Substance: DEXAMETHASONE
     Dosage: HOSPITAL DAY 6
     Route: 065
  10. RUXOLITINIB [Suspect]
     Active Substance: RUXOLITINIB
     Dosage: HOSPITAL DAY 30 TO 33
     Route: 065

REACTIONS (9)
  - Thrombocytopenia [Not Recovered/Not Resolved]
  - Candida infection [Unknown]
  - Drug ineffective [Unknown]
  - Systemic candida [Unknown]
  - Off label use [Unknown]
  - Subdural haematoma [Unknown]
  - Neutropenia [Not Recovered/Not Resolved]
  - Cerebral haemorrhage [Unknown]
  - Septic shock [Unknown]
